FAERS Safety Report 25439944 (Version 1)
Quarter: 2025Q2

REPORT INFORMATION
  Report Type: Spontaneous
  Country: FR (occurrence: FR)
  Receive Date: 20250616
  Receipt Date: 20250616
  Transmission Date: 20250716
  Serious: Yes (Death)
  Sender: MYLAN
  Company Number: None

PATIENT
  Sex: Male

DRUGS (2)
  1. TRAMADOL [Suspect]
     Active Substance: TRAMADOL
     Indication: Product used for unknown indication
  2. CODEINE [Suspect]
     Active Substance: CODEINE
     Indication: Product used for unknown indication

REACTIONS (1)
  - Death [Fatal]
